FAERS Safety Report 17056368 (Version 1)
Quarter: 2019Q4

REPORT INFORMATION
  Report Type: Report from Study
  Country: US (occurrence: US)
  Receive Date: 20191121
  Receipt Date: 20191121
  Transmission Date: 20200122
  Serious: Yes (Hospitalization, Other)
  Sender: FDA-Public Use
  Company Number: US-EMD SERONO-E2B_90026644

PATIENT
  Sex: Male
  Weight: 104 kg

DRUGS (1)
  1. REBIF [Suspect]
     Active Substance: INTERFERON BETA-1A
     Indication: MULTIPLE SCLEROSIS
     Route: 058
     Dates: start: 20170213

REACTIONS (11)
  - Marital problem [Unknown]
  - Suicidal ideation [Unknown]
  - Multiple sclerosis [Not Recovered/Not Resolved]
  - Anxiety [Unknown]
  - Drug dependence [Not Recovered/Not Resolved]
  - Bipolar disorder [Unknown]
  - Injection site pain [Not Recovered/Not Resolved]
  - Injection site erythema [Not Recovered/Not Resolved]
  - Weight decreased [Unknown]
  - Depressed mood [Unknown]
  - Magnetic resonance imaging abnormal [Unknown]

NARRATIVE: CASE EVENT DATE: 2017
